FAERS Safety Report 5160434-7 (Version None)
Quarter: 2006Q4

REPORT INFORMATION
  Report Type: 
  Country: None (occurrence: None)
  Receive Date: 20061121
  Receipt Date: 20061106
  Transmission Date: 20070319
  Serious: Yes (Hospitalization)
  Sender: FDA-Public Use
  Company Number: 2006S1009836

PATIENT
  Age: 74 Year
  Sex: Female
  Weight: 66.6788 kg

DRUGS (6)
  1. FENTANYL TRANSDERMAL SYSTEM [Suspect]
     Indication: NEUROPATHY PERIPHERAL
     Dosage: 5 UG/HR; Q3D;TDER
     Route: 062
     Dates: start: 20061014, end: 20061021
  2. FENTANYL TRANSDERMAL SYSTEM [Suspect]
     Indication: NEUROPATHY PERIPHERAL
     Dosage: 75 UG/HR;Q3D;TDER
     Route: 062
     Dates: start: 20061021
  3. PREDNISONE TAB [Concomitant]
  4. ATORVASTATIN CALCIUM [Concomitant]
  5. RALOXIFENE [Concomitant]
  6. HYDROCHLORIDE [Concomitant]

REACTIONS (2)
  - INADEQUATE ANALGESIA [None]
  - PHARMACEUTICAL PRODUCT COMPLAINT [None]
